FAERS Safety Report 11263914 (Version 1)
Quarter: 2015Q3

REPORT INFORMATION
  Report Type: Spontaneous
  Country: US (occurrence: US)
  Receive Date: 20150713
  Receipt Date: 20150713
  Transmission Date: 20151125
  Serious: No
  Sender: FDA-Public Use
  Company Number: US-JNJFOC-20150614617

PATIENT
  Age: 29 Year
  Sex: Male
  Weight: 95.26 kg

DRUGS (2)
  1. CONCERTA [Suspect]
     Active Substance: METHYLPHENIDATE HYDROCHLORIDE
     Indication: DISTURBANCE IN ATTENTION
     Route: 048
     Dates: start: 20150615
  2. CLARITIN [Concomitant]
     Active Substance: LORATADINE
     Indication: SEASONAL ALLERGY
     Route: 048

REACTIONS (1)
  - Antisocial behaviour [Not Recovered/Not Resolved]

NARRATIVE: CASE EVENT DATE: 201506
